FAERS Safety Report 6163390-8 (Version None)
Quarter: 2009Q2

REPORT INFORMATION
  Report Type: 
  Country: None (occurrence: None)
  Receive Date: 20090422
  Receipt Date: 20090414
  Transmission Date: 20091009
  Serious: Yes (Other)
  Sender: FDA-Public Use
  Company Number: PHHY2009IT14010

PATIENT
  Age: 29 Year
  Sex: Male

DRUGS (7)
  1. DEFEROXAMINE MESYLATE [Suspect]
     Indication: IRON OVERLOAD
     Dosage: UNK
  2. DEFEROXAMINE MESYLATE [Suspect]
     Dosage: 30 MG/KG, QW3
     Dates: start: 20050101, end: 20050901
  3. DEFEROXAMINE MESYLATE [Suspect]
     Dosage: 30 MG/KG, QW5
     Dates: start: 20050901
  4. DEFEROXAMINE MESYLATE [Suspect]
     Dosage: 30 MG, QW3
  5. DEFERIPRONE [Suspect]
     Indication: IRON OVERLOAD
     Dosage: 50 MG/KG DAILY
     Dates: start: 20050101, end: 20050601
  6. DEFERIPRONE [Suspect]
     Dosage: 50 MG/KG, UNK
     Dates: start: 20050701, end: 20051101
  7. DEFERIPRONE [Suspect]
     Dosage: UNK
     Dates: start: 20060201

REACTIONS (4)
  - ALANINE AMINOTRANSFERASE INCREASED [None]
  - ANOREXIA [None]
  - ASTHENIA [None]
  - HEPATITIS B [None]
